FAERS Safety Report 15608173 (Version 2)
Quarter: 2020Q1

REPORT INFORMATION
  Report Type: Spontaneous
  Country: US (occurrence: US)
  Receive Date: 20181112
  Receipt Date: 20200203
  Transmission Date: 20200409
  Serious: Yes (Hospitalization)
  Sender: FDA-Public Use
  Company Number: US-PFIZER INC-2018459212

PATIENT
  Age: 63 Year
  Sex: Female
  Weight: 75.74 kg

DRUGS (1)
  1. IBRANCE [Suspect]
     Active Substance: PALBOCICLIB
     Indication: BREAST CANCER FEMALE
     Dosage: 125 MG, CYCLIC (1-21 OF 28 DAYS)
     Route: 048
     Dates: start: 20171209

REACTIONS (2)
  - Urinary tract infection [Unknown]
  - Pain [Unknown]
